FAERS Safety Report 9962098 (Version 1)
Quarter: 2014Q1

REPORT INFORMATION
  Report Type: Spontaneous
  Country: US (occurrence: None)
  Receive Date: 20140304
  Receipt Date: 20140304
  Transmission Date: 20141002
  Serious: Yes (Hospitalization)
  Sender: FDA-Public Use
  Company Number: None

PATIENT
  Age: 63 Year
  Sex: Female
  Weight: 99.55 kg

DRUGS (2)
  1. CARBOPLATIN [Suspect]
  2. PACLITAXEL (TAXOL) [Suspect]

REACTIONS (7)
  - Nausea [None]
  - Vomiting [None]
  - Hypophagia [None]
  - Blood creatinine increased [None]
  - Diarrhoea [None]
  - Abdominal pain [None]
  - Clostridium difficile infection [None]
